FAERS Safety Report 18812681 (Version 1)
Quarter: 2021Q1

REPORT INFORMATION
  Report Type: Spontaneous
  Country: US (occurrence: US)
  Receive Date: 20210131
  Receipt Date: 20210131
  Transmission Date: 20210419
  Serious: No
  Sender: FDA-Public Use
  Company Number: US-JNJFOC-20210139271

PATIENT
  Age: 5 Decade
  Sex: Male
  Weight: 120.31 kg

DRUGS (1)
  1. XARELTO [Suspect]
     Active Substance: RIVAROXABAN
     Indication: FACTOR V DEFICIENCY
     Route: 048
     Dates: start: 2013

REACTIONS (4)
  - Arthritis [Not Recovered/Not Resolved]
  - Product use in unapproved indication [Unknown]
  - SARS-CoV-2 test positive [Not Recovered/Not Resolved]
  - Off label use [Unknown]

NARRATIVE: CASE EVENT DATE: 2013
